FAERS Safety Report 5862178-2 (Version None)
Quarter: 2008Q3

REPORT INFORMATION
  Report Type: 
  Country: None (occurrence: None)
  Receive Date: 20080828
  Receipt Date: 20080429
  Transmission Date: 20090109
  Serious: No
  Sender: FDA-Public Use
  Company Number: A0725347A

PATIENT
  Age: 66 Year
  Sex: Male

DRUGS (11)
  1. ACYCLOVIR [Suspect]
     Indication: GENITAL HERPES
     Dosage: 800MG TWICE PER DAY
     Route: 048
     Dates: start: 20080421, end: 20080424
  2. ZOVIRAX [Suspect]
     Indication: GENITAL HERPES
     Dosage: 1APP THREE TIMES PER DAY
     Route: 061
     Dates: start: 20080421
  3. AMLODIPINE [Suspect]
     Route: 048
     Dates: start: 20080301, end: 20080424
  4. FUROSEMIDE [Concomitant]
  5. TOPROL-XL [Concomitant]
  6. VASOTEC [Concomitant]
  7. CRESTOR [Concomitant]
  8. TRICOR [Concomitant]
  9. EPIVIR [Concomitant]
  10. VIRAMUNE [Concomitant]
  11. KALETRA [Concomitant]

REACTIONS (6)
  - ABDOMINAL PAIN UPPER [None]
  - GASTROOESOPHAGEAL REFLUX DISEASE [None]
  - HYPOAESTHESIA [None]
  - MOTOR DYSFUNCTION [None]
  - PARAESTHESIA [None]
  - STOMACH DISCOMFORT [None]
